FAERS Safety Report 10376134 (Version 1)
Quarter: 2014Q3

REPORT INFORMATION
  Report Type: Spontaneous
  Country: PL (occurrence: PL)
  Receive Date: 20140811
  Receipt Date: 20140811
  Transmission Date: 20150326
  Serious: Yes (Other)
  Sender: FDA-Public Use
  Company Number: PL-GLAXOSMITHKLINE-B0957229A

PATIENT
  Age: 35 Year
  Sex: Female

DRUGS (3)
  1. TROBALT [Suspect]
     Active Substance: EZOGABINE
     Indication: EPILEPSY
     Dosage: 500MG PER DAY
     Route: 065
     Dates: start: 20130917
  2. NEUROTOP [Concomitant]
  3. LEVETIRACETAM. [Concomitant]
     Active Substance: LEVETIRACETAM

REACTIONS (4)
  - Contusion [Recovering/Resolving]
  - Vision blurred [Recovering/Resolving]
  - Contusion [Recovering/Resolving]
  - Vascular injury [Recovering/Resolving]

NARRATIVE: CASE EVENT DATE: 20131010
